FAERS Safety Report 8351621-5 (Version None)
Quarter: 2012Q2

REPORT INFORMATION
  Report Type: 
  Country: None (occurrence: None)
  Receive Date: 20120511
  Receipt Date: 20120501
  Transmission Date: 20120825
  Serious: No
  Sender: FDA-Public Use
  Company Number: US-BIOGENIDEC-2012BI007665

PATIENT
  Sex: Male
  Weight: 72 kg

DRUGS (19)
  1. AMIODARONE HCL [Concomitant]
  2. DETROL LA [Concomitant]
  3. GABAPENTIN [Concomitant]
  4. TIZANIDINE [Concomitant]
  5. VITAMIN B-12 [Concomitant]
  6. CELEBREX [Concomitant]
  7. ZOLOFT [Concomitant]
  8. ATROVENT [Concomitant]
  9. MULTI-VITAMIN [Concomitant]
  10. ASPIRIN [Concomitant]
  11. MAGNESIUM [Concomitant]
  12. SINEMET [Concomitant]
  13. LIDODERM [Concomitant]
  14. OXYCODONE HCL [Concomitant]
  15. PRILOSEC [Concomitant]
  16. FENTANYL-100 [Concomitant]
  17. TYSABRI [Suspect]
     Indication: MULTIPLE SCLEROSIS
     Route: 042
     Dates: start: 20070312, end: 20120131
  18. METOPROLOL TARTRATE [Concomitant]
  19. SENNA-MINT WAF [Concomitant]

REACTIONS (1)
  - MULTIPLE SCLEROSIS [None]
